FAERS Safety Report 5143177-5 (Version None)
Quarter: 2006Q4

REPORT INFORMATION
  Report Type: 
  Country: None (occurrence: None)
  Receive Date: 20061031
  Receipt Date: 20061031
  Transmission Date: 20070319
  Serious: Yes (Other)
  Sender: FDA-Public Use
  Company Number: None

PATIENT
  Sex: Female

DRUGS (1)
  1. REVLIMID [Suspect]
     Indication: MULTIPLE MYELOMA
     Dosage: 15MG    QD      PO
     Route: 048
     Dates: start: 20060921, end: 20060929

REACTIONS (3)
  - BONE MARROW FAILURE [None]
  - HAEMOGLOBIN DECREASED [None]
  - THROMBOCYTOPENIA [None]
